FAERS Safety Report 17776006 (Version 1)
Quarter: 2020Q2

REPORT INFORMATION
  Report Type: Spontaneous
  Country: US (occurrence: US)
  Receive Date: 20200513
  Receipt Date: 20200513
  Transmission Date: 20200714
  Serious: Yes (Life-Threatening, Hospitalization, Disabling)
  Sender: FDA-Public Use
  Company Number: None

PATIENT
  Age: 36 Year
  Sex: Male
  Weight: 69.75 kg

DRUGS (8)
  1. VITAMIN D3 [Concomitant]
     Active Substance: CHOLECALCIFEROL
  2. TEMAZEPAM. [Concomitant]
     Active Substance: TEMAZEPAM
  3. VITAMIN B COMPLEX [Concomitant]
     Active Substance: CYANOCOBALAMIN\DEXPANTHENOL\NIACINAMIDE\PYRIDOXINE HYDROCHLORIDE\RIBOFLAVIN 5^-PHOSPHATE SODIUM\THIAMINE HYDROCHLORIDE\VITAMIN B COMPLEX
  4. MULTIVITAMIN [Concomitant]
     Active Substance: VITAMINS
  5. ZONISAMIDE. [Suspect]
     Active Substance: ZONISAMIDE
     Indication: EPILEPSY
     Dosage: ?          QUANTITY:4 CAPSULE(S);?
     Route: 048
  6. KEPPRA [Concomitant]
     Active Substance: LEVETIRACETAM
  7. MAGNESIUM [Concomitant]
     Active Substance: MAGNESIUM
  8. ZONISAMIDE. [Concomitant]
     Active Substance: ZONISAMIDE

REACTIONS (5)
  - Product formulation issue [None]
  - Schizophrenia [None]
  - Acidosis [None]
  - Product substitution issue [None]
  - Drug monitoring procedure not performed [None]

NARRATIVE: CASE EVENT DATE: 20200506
